FAERS Safety Report 9769269 (Version 3)
Quarter: 2014Q1

REPORT INFORMATION
  Report Type: Spontaneous
  Country: CH (occurrence: None)
  Receive Date: 20131216
  Receipt Date: 20140210
  Transmission Date: 20141002
  Serious: Yes (Other)
  Sender: FDA-Public Use
  Company Number: 2013345764

PATIENT
  Sex: Male
  Weight: 3.2 kg

DRUGS (7)
  1. FRAGMIN [Suspect]
     Dosage: 5000 IU, 1X/DAY, TRANSPLACENTAL
     Route: 064
     Dates: start: 20130607, end: 20130609
  2. ELTROXIN [Suspect]
     Indication: HYPOTHYROIDISM
     Dosage: 75 UG, DAILY, TRANSPLACETNAL
     Route: 064
     Dates: start: 2012
  3. BUSCOPAN [Suspect]
     Dosage: MAXIMUM 2X10 MG AS NEEDED, TRANSPLACETAL
     Route: 064
     Dates: start: 20130510
  4. ADALAT CR [Suspect]
     Dosage: 30 MG, 1X/DAY, TRANSPLACENTAL
     Route: 064
     Dates: start: 20130610, end: 20130619
  5. MAGNESIOCARD [Suspect]
     Dosage: UNKNOWN DOSE 2X/DAY, TRANSPLACETAL
     Route: 064
     Dates: start: 20130610
  6. DEURSIL RR (URSODEOXYCHOLIC ACID) [Suspect]
     Dosage: 900 MG, 1X/DAY, TRANSPLACENTAL
     Route: 064
     Dates: start: 20130703
  7. GYNO-TARDYFERON (ASCRORBIC ACID, FERROUS SULFATE, FOLIC ACID, PROTEASE) [Concomitant]

REACTIONS (3)
  - Jaundice neonatal [None]
  - Congenital foot malformation [None]
  - Maternal drugs affecting foetus [None]
